FAERS Safety Report 4993238-6 (Version None)
Quarter: 2006Q1

REPORT INFORMATION
  Report Type: 
  Country: None (occurrence: None)
  Receive Date: 20060314
  Receipt Date: 20050208
  Transmission Date: 20060701
  Serious: Yes (Other)
  Sender: FDA-Public Use
  Company Number: 200510570BCC

PATIENT
  Sex: Male
  Weight: 82.5547 kg

DRUGS (5)
  1. ALEVE (CAPLET) [Suspect]
     Indication: ARTHRALGIA
     Dosage: 220 MG, BID, ORAL
     Route: 048
     Dates: start: 20020101, end: 20040101
  2. METOPROLOL TARTRATE [Concomitant]
  3. PLAVIX [Concomitant]
  4. PRAVACHOL [Concomitant]
  5. OMEPRAZOLE [Concomitant]

REACTIONS (1)
  - HAEMATOCHEZIA [None]
